FAERS Safety Report 6007551-7 (Version None)
Quarter: 2008Q4

REPORT INFORMATION
  Report Type: 
  Country: None (occurrence: None)
  Receive Date: 20081217
  Receipt Date: 20080506
  Transmission Date: 20090506
  Serious: No
  Sender: FDA-Public Use
  Company Number: US-ASTRAZENECA-2008UW09385

PATIENT
  Age: 84 Year
  Sex: Female
  Weight: 53.5 kg

DRUGS (4)
  1. CRESTOR [Suspect]
     Indication: HYPERCHOLESTEROLAEMIA
     Dates: start: 20060101
  2. INDERAL [Concomitant]
  3. HYTRIN [Concomitant]
  4. HYZAAR [Concomitant]

REACTIONS (1)
  - WEIGHT DECREASED [None]
